FAERS Safety Report 8649709 (Version 3)
Quarter: 2013Q1

REPORT INFORMATION
  Report Type: Spontaneous
  Country: US (occurrence: None)
  Receive Date: 20120619
  Receipt Date: 20130322
  Transmission Date: 20140127
  Serious: Yes (Other)
  Sender: FDA-Public Use
  Company Number: 2012-000637

PATIENT
  Age: 60 Year
  Sex: Female

DRUGS (27)
  1. ACTONEL [Suspect]
     Indication: OSTEOPENIA
     Dosage: 35 MG, ONCE WEEKLY, ORAL
     Route: 048
     Dates: start: 200803, end: 201002
  2. ACTONEL [Suspect]
     Indication: OSTEOPENIA
     Dosage: 150 MG ONCE WEEKLY, ORAL
     Route: 048
     Dates: start: 20080915
  3. FOSAMAX [Suspect]
     Indication: OSTEOPENIA
     Dosage: 70 MG ONCE WEEKLY, ORAL
     Route: 048
  4. VAGIFEM [Concomitant]
  5. ESTRACE [Concomitant]
  6. SYNTHROID [Concomitant]
  7. VITAMIN D [Concomitant]
  8. MULTIVITAMIN /00097801/ (ASCORBIC ACID, CALCIUM PANTOTHENATE, ERGOCALCIFEROL, NICOTINAMIDE, PYRIDOXI [Concomitant]
  9. CALCIUM CARBONATE [Concomitant]
  10. MULTIVITAMIN AND MINERAL SUPPLEMENT (MINERALS NOS, VITAMINS NOS) [Concomitant]
  11. SCOPOLAMINE /00008701/ (HYOSCINE) [Concomitant]
  12. FEXOFENADINE [Concomitant]
  13. PATANOL [Concomitant]
  14. METHYLPREDNISOLONE [Concomitant]
  15. GABAPENTIN (GABAPENTIN) [Concomitant]
  16. AUGMENTIN /00756801/ (AMOXICILLIN SODIUM, CLAVULANATE POTASSIUM) [Concomitant]
  17. VALTREX (VALACICLVIR HYDROCHLORIDE) [Concomitant]
  18. NITROFURANTOIN [Concomitant]
  19. LIPITOR (ATORVASTATIN CALCIUM) [Concomitant]
  20. LIPITOR (ATORVASTATIN CALCIUM) [Concomitant]
  21. TYLENOL [Concomitant]
  22. PROPOXYPHENE NAPSYLATE W/PARACETAMOL [Concomitant]
  23. CYCLOBENZAPRINE (CYCLOBENZAPRINE) [Concomitant]
  24. METHOCARBAMOL (METHOCARBAMOL) [Concomitant]
  25. PREDNISONE [Concomitant]
  26. HYDROXYZINE (HYDROXYZINE) [Concomitant]
  27. ZYMAR (GATIFLOXACIN) [Concomitant]

REACTIONS (19)
  - Stress [None]
  - Femur fracture [None]
  - Stress fracture [None]
  - Pain in extremity [None]
  - Arthralgia [None]
  - Muscle tightness [None]
  - Pain [None]
  - Gait disturbance [None]
  - Low turnover osteopathy [None]
  - Bone disorder [None]
  - Dysphagia [None]
  - Bone marrow oedema [None]
  - Monoclonal gammopathy [None]
  - Blood immunoglobulin M increased [None]
  - Bunion [None]
  - Bursitis [None]
  - Radiculopathy [None]
  - Osteoarthritis [None]
  - Adrenal adenoma [None]
